FAERS Safety Report 7411985-3 (Version None)
Quarter: 2011Q2

REPORT INFORMATION
  Report Type: 
  Country: None (occurrence: None)
  Receive Date: 20110413
  Receipt Date: 20090930
  Transmission Date: 20111010
  Serious: Yes (Hospitalization, Other)
  Sender: FDA-Public Use
  Company Number: US-BAYER-200934518NA

PATIENT
  Age: 71 Year
  Sex: Male
  Weight: 77 kg

DRUGS (23)
  1. OMNIPAQUE 140 [Concomitant]
     Dosage: 350 UNK
     Dates: start: 20040924
  2. HEPARIN [Concomitant]
     Route: 048
  3. ATROVENT [Concomitant]
  4. OMNISCAN [Concomitant]
     Dosage: 20 ML, UNK
     Dates: start: 20040926
  5. COUMADIN [Concomitant]
     Route: 048
  6. LORATADINE [Concomitant]
     Dosage: 10 MG, UNK
     Route: 048
  7. AEROBID [Concomitant]
  8. FLONASE [Concomitant]
  9. ALPHAGAN [Concomitant]
     Route: 047
  10. ACIPHEX [Concomitant]
     Dosage: 20 MG, QD
  11. ALBUTEROL [Concomitant]
  12. TRUSOPT [Concomitant]
     Route: 047
  13. PROCARDIA [Concomitant]
     Dosage: 80 MG, QD
     Route: 048
  14. ANCEF [Concomitant]
     Dosage: 1 G, UNK
     Route: 042
     Dates: start: 20040927, end: 20040927
  15. DIOVAN [Concomitant]
     Dosage: 80 MG, QD
     Route: 048
  16. TRASYLOL [Suspect]
     Indication: CORONARY ARTERY BYPASS
     Dosage: UNK
     Route: 042
     Dates: start: 20040927, end: 20040927
  17. ACETYLSALICYLIC ACID SRT [Concomitant]
     Dosage: 81 MG, UNK
     Route: 048
  18. VISIPAQUE [IODINE,IODIXANOL] [Concomitant]
     Dosage: 320 UNK
     Dates: start: 20040924
  19. XALATAN [Concomitant]
     Route: 047
  20. VANCOMYCIN [Concomitant]
     Dosage: 1 G, UNK
     Route: 042
     Dates: start: 20040927, end: 20040927
  21. TRASYLOL [Suspect]
     Indication: AORTIC VALVE REPLACEMENT
  22. SEREVENT [Concomitant]
  23. OMEGA 3 FATTY ACIDS [Concomitant]
     Dosage: UNK UNK, QD
     Route: 048

REACTIONS (10)
  - PAIN [None]
  - INJURY [None]
  - RENAL IMPAIRMENT [None]
  - EMOTIONAL DISTRESS [None]
  - STRESS [None]
  - RENAL FAILURE [None]
  - ANXIETY [None]
  - FEAR [None]
  - RENAL INJURY [None]
  - UNEVALUABLE EVENT [None]
